FAERS Safety Report 17296433 (Version 1)
Quarter: 2020Q1

REPORT INFORMATION
  Report Type: Spontaneous
  Country: DE (occurrence: DE)
  Receive Date: 20200121
  Receipt Date: 20200121
  Transmission Date: 20200409
  Serious: Yes (Congenital Anomaly, Other)
  Sender: FDA-Public Use
  Company Number: DE-SA-2019SA222396

PATIENT
  Sex: Female

DRUGS (6)
  1. NICOTINE. [Suspect]
     Active Substance: NICOTINE
     Dosage: TABLET, DURING ALL TRIMESTERS
     Route: 064
  2. INFLUENZA VACCINE [Suspect]
     Active Substance: INFLUENZA VIRUS VACCINE
     Route: 064
  3. PARACETAMOL [Suspect]
     Active Substance: ACETAMINOPHEN
     Dosage: 1000 MG, QD
     Route: 064
  4. VENLAFAXINE HYDROCHLORIDE. [Suspect]
     Active Substance: VENLAFAXINE HYDROCHLORIDE
     Dosage: DURING ALL TRIMESTERS
     Route: 064
  5. PARACETAMOL [Suspect]
     Active Substance: ACETAMINOPHEN
     Dosage: 1500 UNK
     Route: 064
  6. CEFUROXIME. [Suspect]
     Active Substance: CEFUROXIME
     Route: 064

REACTIONS (4)
  - Patent ductus arteriosus [Unknown]
  - Congenital pulmonary hypertension [Unknown]
  - Foetal exposure during pregnancy [Unknown]
  - Congenital tricuspid valve incompetence [Unknown]
